FAERS Safety Report 6594734-0 (Version None)
Quarter: 2010Q1

REPORT INFORMATION
  Report Type: 
  Country: None (occurrence: None)
  Receive Date: 20100222
  Receipt Date: 20091221
  Transmission Date: 20100710
  Serious: Yes (Other)
  Sender: FDA-Public Use
  Company Number: GB-WYE-G05590110

PATIENT
  Age: 69 Year
  Sex: Male

DRUGS (1)
  1. TORISEL [Suspect]
     Indication: METASTATIC RENAL CELL CARCINOMA
     Dosage: UNKNOWN

REACTIONS (1)
  - DRUG TOXICITY [None]
